FAERS Safety Report 15823746 (Version 1)
Quarter: 2019Q1

REPORT INFORMATION
  Report Type: Spontaneous
  Country: US (occurrence: US)
  Receive Date: 20190114
  Receipt Date: 20190114
  Transmission Date: 20190417
  Serious: No
  Sender: FDA-Public Use
  Company Number: US-EPIC PHARMA LLC-2018EPC00395

PATIENT
  Age: 69 Year
  Sex: Female
  Weight: 56.69 kg

DRUGS (1)
  1. ESTRADIOL. [Suspect]
     Active Substance: ESTRADIOL
     Dosage: 1 MG, 1X/DAY
     Route: 048
     Dates: start: 201808, end: 20180816

REACTIONS (10)
  - Hot flush [Recovered/Resolved]
  - Blister [Not Recovered/Not Resolved]
  - Paraesthesia [Recovering/Resolving]
  - Drug ineffective [Recovering/Resolving]
  - Suspected product contamination [Not Recovered/Not Resolved]
  - Burning sensation [Recovering/Resolving]
  - Feeling abnormal [Recovering/Resolving]
  - Product substitution issue [Unknown]
  - Dermatitis herpetiformis [Recovering/Resolving]
  - Pruritus [Not Recovered/Not Resolved]

NARRATIVE: CASE EVENT DATE: 201808
